FAERS Safety Report 17501525 (Version 1)
Quarter: 2020Q1

REPORT INFORMATION
  Report Type: Spontaneous
  Country: US (occurrence: US)
  Receive Date: 20200304
  Receipt Date: 20200304
  Transmission Date: 20200409
  Serious: Yes (Disabling)
  Sender: FDA-Public Use
  Company Number: None

PATIENT
  Age: 65 Year
  Sex: Male
  Weight: 75.15 kg

DRUGS (2)
  1. ESCITALOPRAM [Suspect]
     Active Substance: ESCITALOPRAM OXALATE
     Indication: DEPRESSION
     Dosage: ?          QUANTITY:1 TABLET(S);?
     Route: 048
     Dates: start: 20200225, end: 20200227
  2. ATORVASTTIN 10MG [Concomitant]

REACTIONS (4)
  - Depression [None]
  - Tinnitus [None]
  - Impaired work ability [None]
  - Insomnia [None]

NARRATIVE: CASE EVENT DATE: 20200228
